FAERS Safety Report 21410494 (Version 1)
Quarter: 2022Q4

REPORT INFORMATION
  Report Type: Report from Study
  Country: TR (occurrence: TR)
  Receive Date: 20221005
  Receipt Date: 20221005
  Transmission Date: 20230113
  Serious: Yes (Other)
  Sender: FDA-Public Use
  Company Number: TR-NOVARTISPH-NVSC2022TR221765

PATIENT
  Age: 19 Year
  Sex: Female
  Weight: 45 kg

DRUGS (2)
  1. OMNITROPE [Suspect]
     Active Substance: SOMATROPIN
     Indication: Growth hormone deficiency
     Dosage: 7 TIMES PER WEEK
     Route: 058
     Dates: start: 20220927
  2. OMNITROPE [Suspect]
     Active Substance: SOMATROPIN
     Dosage: 2.5 MG
     Route: 058

REACTIONS (2)
  - Palpitations [Unknown]
  - Incorrect dose administered [Unknown]

NARRATIVE: CASE EVENT DATE: 20220929
